FAERS Safety Report 5294720-7 (Version None)
Quarter: 2007Q2

REPORT INFORMATION
  Report Type: 
  Country: None (occurrence: None)
  Receive Date: 20070409
  Receipt Date: 20070409
  Transmission Date: 20071010
  Serious: Yes (Life-Threatening, Hospitalization, Other)
  Sender: FDA-Public Use
  Company Number: None

PATIENT
  Age: 43 Year
  Sex: Female
  Weight: 65.7716 kg

DRUGS (1)
  1. ZELNORM [Suspect]
     Indication: IRRITABLE BOWEL SYNDROME
     Dosage: 1 TABLET 2 TIMES A DAY PO
     Route: 048
     Dates: start: 20070112, end: 20070401

REACTIONS (3)
  - CHEST PAIN [None]
  - INCISION SITE HAEMATOMA [None]
  - THROMBOSIS [None]
